FAERS Safety Report 7305234-4 (Version None)
Quarter: 2011Q1

REPORT INFORMATION
  Report Type: 
  Country: None (occurrence: None)
  Receive Date: 20110222
  Receipt Date: 20110214
  Transmission Date: 20110831
  Serious: Yes (Hospitalization, Other)
  Sender: FDA-Public Use
  Company Number: FR-PFIZER INC-2011026668

PATIENT
  Age: 52 Year
  Sex: Male

DRUGS (60)
  1. EMEND [Suspect]
     Dosage: UNK
     Route: 048
     Dates: end: 20100820
  2. PRIMPERAN TAB [Concomitant]
     Dosage: 1 DF, 1X/DAY
     Route: 042
     Dates: start: 20100920, end: 20100921
  3. ZELITREX [Concomitant]
     Dosage: 1 DF, 2X/DAY
     Route: 048
     Dates: start: 20100813, end: 20100818
  4. HUMALOG [Concomitant]
     Dosage: UNK
     Route: 058
     Dates: start: 20101001
  5. CIFLOX [Concomitant]
     Dosage: 400 MG, 2X/DAY
     Route: 042
     Dates: start: 20100822, end: 20100823
  6. OXYCODONE HCL [Concomitant]
     Dosage: UNK
     Route: 042
     Dates: end: 20100908
  7. ZOPHREN [Concomitant]
     Dosage: 8 MG, 2X/DAY
     Route: 042
     Dates: start: 20100809, end: 20100811
  8. ATARAX [Concomitant]
     Dosage: UNK
     Route: 042
     Dates: start: 20100805, end: 20100805
  9. CERUBIDIN [Concomitant]
     Dosage: UNK
     Route: 042
     Dates: start: 20100823, end: 20100824
  10. HEPARIN SODIUM [Concomitant]
     Dosage: UNK
     Route: 042
     Dates: start: 20100828, end: 20100908
  11. TRANXENE [Concomitant]
     Dosage: UNK
     Route: 048
     Dates: start: 20100804, end: 20100812
  12. GAVISCON [Concomitant]
     Dosage: 2 DF, 3X/DAY
     Route: 048
     Dates: start: 20101017
  13. PRIMPERAN TAB [Concomitant]
     Dosage: 1 DF, 3X/DAY
     Route: 042
     Dates: start: 20100827, end: 20100910
  14. ACTRAPID [Concomitant]
     Dosage: UNK
     Route: 042
     Dates: start: 20100908, end: 20100930
  15. LASIX [Concomitant]
     Dosage: 2 MG, 2X/DAY
     Route: 042
     Dates: start: 20100909, end: 20100910
  16. ZOPHREN [Concomitant]
     Dosage: 8 MG, 2X/DAY
     Route: 042
     Dates: start: 20100816, end: 20100816
  17. CYTARABINE [Concomitant]
     Dosage: 40 MG, UNK
     Route: 037
     Dates: start: 20100809, end: 20100826
  18. XANAX [Concomitant]
     Dosage: UNK
     Route: 048
     Dates: start: 20100814, end: 20100828
  19. TRANXENE [Concomitant]
     Dosage: UNK
     Route: 048
     Dates: start: 20100828, end: 20100829
  20. HUMALOG [Concomitant]
     Dosage: UNK
     Route: 058
     Dates: end: 20100823
  21. LEVIMIR [Concomitant]
     Dosage: UNK
     Route: 058
     Dates: start: 20101001
  22. SCOPOLAMINE [Concomitant]
     Dosage: UNK
     Route: 062
     Dates: start: 20100901, end: 20100910
  23. STILNOX [Concomitant]
     Dosage: 10 MG, 1X/DAY
     Route: 048
     Dates: end: 20100910
  24. SERESTA [Concomitant]
     Dosage: 10 MG, 4X/DAY
     Dates: end: 20100911
  25. PENTACARINAT ^AVENTIS^ [Concomitant]
     Dosage: UNK
     Dates: start: 20100825, end: 20100825
  26. ENDOXAN [Concomitant]
     Dosage: UNK
     Route: 042
     Dates: start: 20100809, end: 20100809
  27. FASTURTEC [Concomitant]
     Dosage: UNK
     Route: 042
     Dates: start: 20100802, end: 20100803
  28. CORTANCYL [Suspect]
     Indication: ACUTE LYMPHOCYTIC LEUKAEMIA
     Dosage: UNK
     Route: 048
     Dates: start: 20100802, end: 20100808
  29. EMEND [Suspect]
     Dosage: UNK
     Route: 048
     Dates: start: 20100809
  30. AMBISOME [Suspect]
     Dosage: 50 MG, ALTERNATE DAY
     Route: 042
     Dates: start: 20100813, end: 20100914
  31. VINCRISTINE SULFATE [Concomitant]
     Dosage: UNK
     Route: 042
     Dates: start: 20100809, end: 20100809
  32. PENTACARINAT ^AVENTIS^ [Concomitant]
     Dosage: UNK
     Dates: start: 20100812, end: 20100812
  33. ZOPHREN [Concomitant]
     Dosage: 8 MG, 2X/DAY
     Route: 042
     Dates: start: 20100823, end: 20100826
  34. TIENAM [Concomitant]
     Dosage: 1 G, 3X/DAY
     Dates: start: 20100822, end: 20100908
  35. CERUBIDIN [Concomitant]
     Dosage: UNK
     Route: 042
     Dates: start: 20100809, end: 20100811
  36. FASTURTEC [Concomitant]
     Dosage: UNK
     Route: 042
     Dates: start: 20100805, end: 20100806
  37. METHOTREXATE SODIUM [Concomitant]
     Dosage: 15 MG, UNK
     Route: 037
     Dates: start: 20100809, end: 20100826
  38. VINCRISTINE SULFATE [Concomitant]
     Dosage: UNK
     Route: 042
     Dates: start: 20100830, end: 20100830
  39. SPASFON [Concomitant]
     Dosage: UNK
     Route: 042
     Dates: start: 20100804, end: 20101001
  40. MOPRAL [Concomitant]
     Dosage: UNK
     Route: 042
     Dates: start: 20100803, end: 20100910
  41. ACUPAN [Concomitant]
     Dosage: UNK
     Route: 042
     Dates: start: 20100804
  42. DEPO-MEDROL [Suspect]
     Dosage: UNK
     Route: 037
     Dates: start: 20100809, end: 20100826
  43. KIDROLASE [Suspect]
     Indication: ACUTE LYMPHOCYTIC LEUKAEMIA
     Dosage: 11000 IU, 1X/DAY
     Route: 042
     Dates: start: 20100828, end: 20100906
  44. OXYCODONE HCL [Concomitant]
     Dosage: UNK
     Route: 042
     Dates: start: 20100821, end: 20100831
  45. VANCOMYCIN [Concomitant]
     Dosage: 1.25 G, 2X/DAY
     Dates: start: 20100813, end: 20100817
  46. TIENAM [Concomitant]
     Dosage: 500 MG, 3X/DAY
     Route: 042
     Dates: start: 20100909, end: 20100915
  47. ENDOXAN [Concomitant]
     Dosage: 550 MG, UNK
     Route: 042
     Dates: start: 20100823, end: 20100826
  48. CORTANCYL [Suspect]
     Dosage: UNK
     Route: 048
     Dates: start: 20100808, end: 20100822
  49. VINCRISTINE SULFATE [Concomitant]
     Dosage: UNK
     Route: 042
     Dates: start: 20100823, end: 20100823
  50. LANTUS [Concomitant]
     Dosage: UNK
     Route: 058
     Dates: end: 20100908
  51. CONTRAMAL [Concomitant]
     Dosage: 100 MG, UNK
     Route: 042
     Dates: start: 20100801, end: 20101024
  52. OXYCODONE HCL [Concomitant]
     Dosage: UNK
     Route: 042
     Dates: end: 20100905
  53. VANCOMYCIN [Concomitant]
     Dosage: 1.5 G, 2X/DAY
     Route: 042
     Dates: start: 20100818, end: 20100910
  54. GRANOCYTE [Concomitant]
     Dosage: 1 DF, 1X/DAY
     Route: 058
     Dates: start: 20100826, end: 20100910
  55. VINCRISTINE SULFATE [Concomitant]
     Dosage: UNK
     Route: 042
     Dates: start: 20100816, end: 20100816
  56. GAVISCON [Concomitant]
     Dosage: 1 DF, 3X/DAY
     Route: 048
     Dates: start: 20100814, end: 20100819
  57. ZOVIRAX [Concomitant]
     Dosage: 500 MG, UNK
     Route: 042
     Dates: start: 20100818, end: 20100908
  58. AZACTAM [Concomitant]
     Dosage: 1 G, 3X/DAY
     Route: 051
     Dates: start: 20100813, end: 20100821
  59. SERESTA [Concomitant]
     Dosage: UNK
     Route: 048
     Dates: start: 20101017
  60. VANCOMYCIN [Concomitant]
     Dosage: 1 G, 2X/DAY
     Route: 042
     Dates: start: 20100804, end: 20100805

REACTIONS (5)
  - DIABETES MELLITUS INADEQUATE CONTROL [None]
  - HEPATOCELLULAR INJURY [None]
  - COAGULOPATHY [None]
  - BONE MARROW FAILURE [None]
  - BACTERIAL SEPSIS [None]
